FAERS Safety Report 26054723 (Version 1)
Quarter: 2025Q4

REPORT INFORMATION
  Report Type: Report from Study
  Country: US (occurrence: US)
  Receive Date: 20251117
  Receipt Date: 20251117
  Transmission Date: 20260117
  Serious: Yes (Other)
  Sender: NOVARTIS
  Company Number: US-002147023-NVSC2025US176012

PATIENT
  Age: 76 Year
  Sex: Female

DRUGS (1)
  1. LEQVIO [Suspect]
     Active Substance: INCLISIRAN SODIUM
     Indication: Product used for unknown indication
     Dosage: UNK
     Route: 058
     Dates: start: 20251020

REACTIONS (3)
  - Lower respiratory tract infection [Unknown]
  - Secretion discharge [Unknown]
  - Pollakiuria [Unknown]

NARRATIVE: CASE EVENT DATE: 20251108
